FAERS Safety Report 18821460 (Version 1)
Quarter: 2021Q1

REPORT INFORMATION
  Report Type: Spontaneous
  Country: US (occurrence: US)
  Receive Date: 20210201
  Receipt Date: 20210201
  Transmission Date: 20210419
  Serious: Yes (Life-Threatening)
  Sender: FDA-Public Use
  Company Number: None

PATIENT
  Age: 90 Year
  Sex: Male
  Weight: 91 kg

DRUGS (1)
  1. PROPOFOL (PROPOFOL 10MG/ML , EMULSON) [Suspect]
     Active Substance: PROPOFOL
     Indication: SEDATION
     Dates: start: 20200630, end: 20200702

REACTIONS (2)
  - Bradycardia [None]
  - Hypotension [None]

NARRATIVE: CASE EVENT DATE: 20200702
